FAERS Safety Report 6636572-6 (Version None)
Quarter: 2010Q1

REPORT INFORMATION
  Report Type: 
  Country: None (occurrence: None)
  Receive Date: 20100311
  Receipt Date: 20100301
  Transmission Date: 20100710
  Serious: Yes (Other)
  Sender: FDA-Public Use
  Company Number: 525048

PATIENT
  Age: 1 Year
  Sex: Male

DRUGS (7)
  1. CARBOPLATIN [Suspect]
     Indication: EWING'S SARCOMA
  2. ETOPOSIDE [Suspect]
     Indication: EWING'S SARCOMA
  3. CYCLOPHOSPHAMIDE [Suspect]
     Indication: EWING'S SARCOMA
  4. DOXORUBICIN HCL [Suspect]
     Indication: EWING'S SARCOMA
  5. IFOSFAMIDE [Suspect]
     Indication: EWING'S SARCOMA
  6. TEMOZOLOMIDE [Suspect]
     Indication: EWING'S SARCOMA
  7. TOPOTECAN [Suspect]
     Indication: EWING'S SARCOMA

REACTIONS (1)
  - MYELOID LEUKAEMIA [None]
